FAERS Safety Report 8094081-4 (Version None)
Quarter: 2012Q1

REPORT INFORMATION
  Report Type: 
  Country: None (occurrence: None)
  Receive Date: 20120131
  Receipt Date: 20120123
  Transmission Date: 20120608
  Serious: Yes (Disabling)
  Sender: FDA-Public Use
  Company Number: NL-ASTELLAS-2012EU000422

PATIENT
  Sex: Male
  Weight: 100 kg

DRUGS (1)
  1. VESICARE [Suspect]
     Indication: NEUROGENIC BLADDER
     Dosage: 5 MG, UID/QD
     Route: 048
     Dates: start: 20111114, end: 20111121

REACTIONS (2)
  - URINARY RETENTION [None]
  - ASTHENIA [None]
